FAERS Safety Report 5639840-X (Version None)
Quarter: 2008Q1

REPORT INFORMATION
  Report Type: 
  Country: None (occurrence: None)
  Receive Date: 20080226
  Receipt Date: 20080226
  Transmission Date: 20080703
  Serious: No
  Sender: FDA-Public Use
  Company Number: None

PATIENT
  Age: 37 Year
  Sex: Male
  Weight: 89.8122 kg

DRUGS (1)
  1. LIPITOR [Suspect]
     Indication: BLOOD CHOLESTEROL INCREASED
     Dosage: 20MG QD PO
     Route: 048
     Dates: start: 20070201, end: 20070301

REACTIONS (3)
  - INSOMNIA [None]
  - MYALGIA [None]
  - VIRAL INFECTION [None]
